FAERS Safety Report 5921496-X (Version None)
Quarter: 2008Q4

REPORT INFORMATION
  Report Type: 
  Country: None (occurrence: None)
  Receive Date: 20081016
  Receipt Date: 20081016
  Transmission Date: 20090506
  Serious: Yes (Other)
  Sender: FDA-Public Use
  Company Number: None

PATIENT
  Age: 52 Year
  Sex: Female

DRUGS (2)
  1. XANAX [Suspect]
     Indication: ANXIETY DISORDER
     Dosage: 0.25 MG PO, BID
     Route: 048
  2. COGENTIN [Concomitant]

REACTIONS (3)
  - ANXIETY [None]
  - HEART RATE INCREASED [None]
  - INSOMNIA [None]
